FAERS Safety Report 9226696 (Version 1)
Quarter: 2013Q2

REPORT INFORMATION
  Report Type: Spontaneous
  Country: US (occurrence: US)
  Receive Date: 20130412
  Receipt Date: 20130412
  Transmission Date: 20140414
  Serious: No
  Sender: FDA-Public Use
  Company Number: US-PFIZER INC-2013114833

PATIENT
  Age: 31 Year
  Sex: Female
  Weight: 68.48 kg

DRUGS (2)
  1. SERTRALINE HCL [Suspect]
     Indication: POSTPARTUM DEPRESSION
     Dosage: 100 MG, 1X/DAY
     Route: 048
     Dates: end: 2013
  2. SERTRALINE HCL [Suspect]
     Dosage: 100 MG, 1X/DAY (2 X50MG TABLETS)
     Route: 048
     Dates: start: 2013

REACTIONS (3)
  - Hypersensitivity [Recovered/Resolved]
  - Pruritus [Recovered/Resolved]
  - Erythema [Recovered/Resolved]
